FAERS Safety Report 21688192 (Version 6)
Quarter: 2023Q4

REPORT INFORMATION
  Report Type: Spontaneous
  Country: US (occurrence: US)
  Receive Date: 20221206
  Receipt Date: 20231121
  Transmission Date: 20240110
  Serious: Yes (Hospitalization, Other)
  Sender: FDA-Public Use
  Company Number: US-Hikma Pharmaceuticals-US-H14001-22-03026

PATIENT
  Age: 16 Year
  Sex: Male
  Weight: 67.2 kg

DRUGS (9)
  1. CYCLOPHOSPHAMIDE [Suspect]
     Active Substance: CYCLOPHOSPHAMIDE
     Indication: Acute lymphocytic leukaemia
     Dosage: 1760 MILLIGRAM, ONCE
     Route: 042
     Dates: start: 20221007
  2. CYTARABINE [Suspect]
     Active Substance: CYTARABINE
     Indication: Acute lymphocytic leukaemia
     Dosage: 132 MILLIGRAM, DAILY X 4 DAYS
     Route: 042
     Dates: start: 20221007, end: 20221109
  3. MERCAPTOPURINE [Suspect]
     Active Substance: MERCAPTOPURINE
     Indication: Acute lymphocytic leukaemia
     Dosage: 106 MILLIGRAM, QD
     Route: 048
     Dates: start: 20221007, end: 20221108
  4. MERCAPTOPURINE [Suspect]
     Active Substance: MERCAPTOPURINE
     Dosage: 106 MILLIGRAM, QD
     Route: 048
     Dates: start: 20221110
  5. METHOTREXATE [Suspect]
     Active Substance: METHOTREXATE
     Indication: Acute lymphocytic leukaemia
     Dosage: 15 MILLIGRAM, ONCE
     Route: 037
     Dates: start: 20221007
  6. PEGASPARGASE [Suspect]
     Active Substance: PEGASPARGASE
     Indication: Acute lymphocytic leukaemia
     Dosage: 4425 INTERNATIONAL UNIT
     Route: 042
     Dates: start: 20221025
  7. RUXOLITINIB [Suspect]
     Active Substance: RUXOLITINIB
     Indication: Acute lymphocytic leukaemia
     Dosage: 90 MILLIGRAM, BID
     Route: 048
     Dates: start: 20221007, end: 20221108
  8. RUXOLITINIB [Suspect]
     Active Substance: RUXOLITINIB
     Dosage: 90 MILLIGRAM, BID
     Route: 048
     Dates: start: 20221110
  9. VINCRISTINE [Suspect]
     Active Substance: VINCRISTINE
     Indication: Acute lymphocytic leukaemia
     Dosage: 2 MILLIGRAM
     Route: 042
     Dates: start: 20221025

REACTIONS (9)
  - Febrile neutropenia [Recovered/Resolved]
  - White blood cell count decreased [Recovering/Resolving]
  - Haemoglobin decreased [Recovering/Resolving]
  - Platelet count decreased [Recovered/Resolved]
  - Amnesia [Recovered/Resolved]
  - Muscular weakness [Unknown]
  - Facial paralysis [Unknown]
  - Aphasia [Unknown]
  - Leukoencephalopathy [Recovered/Resolved]

NARRATIVE: CASE EVENT DATE: 20221104
